FAERS Safety Report 4795203-0 (Version None)
Quarter: 2005Q4

REPORT INFORMATION
  Report Type: 
  Country: None (occurrence: None)
  Receive Date: 20051006
  Receipt Date: 20050927
  Transmission Date: 20060501
  Serious: Yes (Death)
  Sender: FDA-Public Use
  Company Number: 2005EU002202

PATIENT
  Sex: Female

DRUGS (2)
  1. PROGRAF [Suspect]
     Indication: LIVER TRANSPLANT
     Dosage: UNKNOWN/D
  2. SIROLIMUS [Suspect]
     Indication: LIVER TRANSPLANT
     Dosage: UNKNOWN/D

REACTIONS (3)
  - CHOLESTASIS [None]
  - ENCEPHALOPATHY [None]
  - THROMBOCYTOPENIA [None]
